FAERS Safety Report 5059444-X (Version None)
Quarter: 2006Q3

REPORT INFORMATION
  Report Type: 
  Country: None (occurrence: None)
  Receive Date: 20060718
  Receipt Date: 20060707
  Transmission Date: 20061208
  Serious: Yes (Other)
  Sender: FDA-Public Use
  Company Number: 2006067961

PATIENT
  Age: 76 Year
  Sex: Female

DRUGS (3)
  1. NORVASC [Suspect]
     Indication: HYPERTENSION
     Dosage: 5 MG (UNKNOWN), ORAL
     Route: 048
     Dates: end: 20060501
  2. LIPITOR [Suspect]
     Indication: HYPERCHOLESTEROLAEMIA
     Dosage: 10 MG (UNKNOWN), ORAL
     Route: 048
     Dates: start: 20050408
  3. LEVOTHYROXINE SODIUM [Suspect]
     Indication: HYPOTHYROIDISM
     Dosage: 25 AND 50 UG/DAY FROM DAY TO DAY (25 MCG), ORAL
     Route: 048
     Dates: start: 20050408

REACTIONS (1)
  - CONJUNCTIVAL HAEMORRHAGE [None]
